FAERS Safety Report 7908401-1 (Version None)
Quarter: 2011Q4

REPORT INFORMATION
  Report Type: 
  Country: None (occurrence: None)
  Receive Date: 20111111
  Receipt Date: 20111103
  Transmission Date: 20120403
  Serious: Yes (Hospitalization, Other)
  Sender: FDA-Public Use
  Company Number: US-JNJFOC-20111004756

PATIENT
  Sex: Female
  Weight: 61.24 kg

DRUGS (3)
  1. DURAGESIC-100 [Suspect]
     Route: 062
  2. DURAGESIC-100 [Suspect]
     Route: 062
     Dates: start: 20111001
  3. DURAGESIC-100 [Suspect]
     Indication: PAIN
     Route: 062
     Dates: end: 20111001

REACTIONS (3)
  - WHEELCHAIR USER [None]
  - DRUG INEFFECTIVE [None]
  - FALL [None]
